FAERS Safety Report 18417634 (Version 2)
Quarter: 2021Q1

REPORT INFORMATION
  Report Type: Spontaneous
  Country: US (occurrence: US)
  Receive Date: 20201022
  Receipt Date: 20210122
  Transmission Date: 20210419
  Serious: No
  Sender: FDA-Public Use
  Company Number: 2020SGN02928

PATIENT
  Age: 61 Year
  Sex: Female
  Weight: 65.58 kg

DRUGS (8)
  1. VISION PLUS [Concomitant]
  2. VITAMIN D                          /00107901/ [Concomitant]
     Active Substance: ERGOCALCIFEROL
  3. CAPECITABINE. [Concomitant]
     Active Substance: CAPECITABINE
     Indication: BREAST CANCER FEMALE
  4. LOMOTIL [Concomitant]
     Active Substance: ATROPINE SULFATE\DIPHENOXYLATE HYDROCHLORIDE
  5. PROBIOTICS NOS [Concomitant]
     Active Substance: PROBIOTICS NOS
  6. VITAMIN C [Concomitant]
     Active Substance: ASCORBIC ACID
  7. TUKYSA [Suspect]
     Active Substance: TUCATINIB
     Indication: BREAST CANCER FEMALE
     Dosage: 300 MG, BID
     Route: 048
     Dates: start: 20200624
  8. PROCHLORPERAZINE. [Concomitant]
     Active Substance: PROCHLORPERAZINE

REACTIONS (6)
  - Diarrhoea [Unknown]
  - Vomiting [Unknown]
  - Abdominal pain upper [Unknown]
  - Skin discolouration [Unknown]
  - Dry skin [Unknown]
  - Skin lesion [Unknown]

NARRATIVE: CASE EVENT DATE: 20210105
